FAERS Safety Report 4466203-5 (Version None)
Quarter: 2004Q4

REPORT INFORMATION
  Report Type: 
  Country: None (occurrence: None)
  Receive Date: 20041005
  Receipt Date: 20040924
  Transmission Date: 20050328
  Serious: Yes (Death)
  Sender: FDA-Public Use
  Company Number: JP-JNJFOC-20040903170

PATIENT
  Age: 68 Year
  Sex: Male

DRUGS (1)
  1. ITRIZOLE [Suspect]
     Indication: INFECTION PROPHYLAXIS
     Route: 049

REACTIONS (4)
  - DRUG INEFFECTIVE [None]
  - FUNGAL SEPSIS [None]
  - PNEUMONIA [None]
  - TRICHOSPORON INFECTION [None]
